FAERS Safety Report 24208177 (Version 4)
Quarter: 2024Q3

REPORT INFORMATION
  Report Type: Spontaneous
  Country: CN (occurrence: CN)
  Receive Date: 20240814
  Receipt Date: 20240925
  Transmission Date: 20241017
  Serious: No
  Sender: ORGANON
  Company Number: CN-009507513-2408CHN002417

PATIENT
  Age: 76 Year
  Sex: Female
  Weight: 57 kg

DRUGS (3)
  1. SIMVASTATIN [Interacting]
     Active Substance: SIMVASTATIN
     Dosage: UNK (0733#)
     Route: 048
     Dates: start: 20240425
  2. NOXAFIL [Interacting]
     Active Substance: POSACONAZOLE
     Indication: Bronchopulmonary aspergillosis
     Dosage: 300 MILLIGRAM, QD (STUDY DRUG)
     Route: 048
     Dates: start: 20240423, end: 20240423
  3. NOXAFIL [Interacting]
     Active Substance: POSACONAZOLE
     Dosage: 300 MILLIGRAM, BID (STUDY DRUG)
     Route: 048
     Dates: start: 20240424, end: 20240427

REACTIONS (1)
  - Contraindicated product administered [Recovered/Resolved]

NARRATIVE: CASE EVENT DATE: 20240425
